FAERS Safety Report 8054817-5 (Version None)
Quarter: 2012Q1

REPORT INFORMATION
  Report Type: 
  Country: None (occurrence: None)
  Receive Date: 20120119
  Receipt Date: 20120107
  Transmission Date: 20120608
  Serious: Yes (Hospitalization)
  Sender: FDA-Public Use
  Company Number: CA-JNJFOC-20120106526

PATIENT
  Sex: Female
  Weight: 57 kg

DRUGS (3)
  1. REMICADE [Suspect]
     Indication: CROHN'S DISEASE
     Route: 042
     Dates: start: 20120107
  2. REMICADE [Suspect]
     Route: 042
     Dates: start: 20110601
  3. BENADRYL [Concomitant]
     Indication: PREMEDICATION
     Route: 042

REACTIONS (5)
  - BURNING SENSATION [None]
  - INTESTINAL RESECTION [None]
  - FLUSHING [None]
  - INFUSION RELATED REACTION [None]
  - CHEST DISCOMFORT [None]
